FAERS Safety Report 16929291 (Version 1)
Quarter: 2019Q4

REPORT INFORMATION
  Report Type: Spontaneous
  Country: DK (occurrence: DK)
  Receive Date: 20191017
  Receipt Date: 20191017
  Transmission Date: 20200122
  Serious: Yes (Hospitalization)
  Sender: FDA-Public Use
  Company Number: DK-ACCORD-158043

PATIENT
  Age: 81 Year
  Sex: Female

DRUGS (3)
  1. AKYNZEO [Interacting]
     Active Substance: NETUPITANT\PALONOSETRON HYDROCHLORIDE
     Indication: PROPHYLAXIS OF NAUSEA AND VOMITING
     Dosage: STRENGTH: 300 MG / 0.5 MG. DOSAGE: 1 CAPSULE 1 HOUR BEFORE CARBOPLATIN AND NAVELBINE TREATMENT
     Route: 048
     Dates: start: 20190826
  2. CARBOPLATIN ACCORD [Suspect]
     Active Substance: CARBOPLATIN
     Indication: NON-SMALL CELL LUNG CANCER
     Dosage: STRENGTH: 10 MG / ML
     Route: 042
     Dates: start: 20190826, end: 20190826
  3. NAVELBINE [Interacting]
     Active Substance: VINORELBINE TARTRATE
     Indication: NON-SMALL CELL LUNG CANCER
     Dosage: STRENGTH: 20 MG, 30 MG AND 80 MG. DOSAGE: 90 MG ON DAY 1 AND 130 MG ON DAY 8.
     Route: 048
     Dates: start: 20190826, end: 20190902

REACTIONS (5)
  - Stomatitis [Unknown]
  - Abdominal pain [Unknown]
  - Diarrhoea [Recovered/Resolved]
  - Constipation [Unknown]
  - Neutropenia [Recovered/Resolved]

NARRATIVE: CASE EVENT DATE: 20190906
